FAERS Safety Report 5001066-0 (Version None)
Quarter: 2006Q2

REPORT INFORMATION
  Report Type: 
  Country: None (occurrence: None)
  Receive Date: 20060512
  Receipt Date: 20060502
  Transmission Date: 20061013
  Serious: Yes (Hospitalization)
  Sender: FDA-Public Use
  Company Number: FR-BRISTOL-MYERS SQUIBB COMPANY-13365960

PATIENT
  Age: 74 Year
  Sex: Male

DRUGS (7)
  1. COUMADIN [Suspect]
     Route: 048
     Dates: start: 20060315, end: 20060411
  2. VOLTAREN [Suspect]
     Dates: start: 20060315, end: 20060411
  3. VOLTAREN [Suspect]
     Dates: start: 20060315, end: 20060321
  4. LEVOTHYROX [Suspect]
     Dates: end: 20060411
  5. SECTRAL [Concomitant]
  6. COLCHICINE [Concomitant]
  7. SPECIAFOLDINE [Concomitant]

REACTIONS (4)
  - COAGULOPATHY [None]
  - DRUG TOXICITY [None]
  - HYPERKALAEMIA [None]
  - RENAL FAILURE ACUTE [None]
